FAERS Safety Report 10418274 (Version 1)
Quarter: 2014Q2

REPORT INFORMATION
  Report Type: Spontaneous
  Country: US (occurrence: None)
  Receive Date: 20140613
  Receipt Date: 20140613
  Transmission Date: 20141212
  Serious: No
  Sender: FDA-Public Use
  Company Number: 1359578

PATIENT
  Sex: Male

DRUGS (1)
  1. ZELBORAF (VEMURAFENIB) [Suspect]
     Indication: MALIGNANT MELANOMA

REACTIONS (4)
  - Rash [None]
  - Pyrexia [None]
  - Joint swelling [None]
  - Arthritis [None]
